FAERS Safety Report 8785320 (Version 4)
Quarter: 2013Q3

REPORT INFORMATION
  Report Type: Spontaneous
  Country: US (occurrence: US)
  Receive Date: 20120914
  Receipt Date: 20130822
  Transmission Date: 20140515
  Serious: Yes (Hospitalization, Other)
  Sender: FDA-Public Use
  Company Number: US-009507513-1209USA004276

PATIENT
  Sex: Female
  Weight: 83.9 kg

DRUGS (1)
  1. NUVARING [Suspect]
     Indication: CONTRACEPTION
     Dosage: UNK
     Route: 067
     Dates: start: 200807, end: 200908

REACTIONS (7)
  - Open reduction of fracture [Unknown]
  - Pulmonary embolism [Unknown]
  - Maternal exposure before pregnancy [Recovered/Resolved]
  - Road traffic accident [Unknown]
  - Hip fracture [Unknown]
  - Anaemia [Unknown]
  - Deep vein thrombosis [Unknown]
